FAERS Safety Report 10785066 (Version 1)
Quarter: 2015Q1

REPORT INFORMATION
  Report Type: Spontaneous
  Country: CN (occurrence: None)
  Receive Date: 20150209
  Receipt Date: 20150209
  Transmission Date: 20150721
  Serious: Yes (Hospitalization)
  Sender: FDA-Public Use
  Company Number: NSR_01827_2015

PATIENT
  Age: 80 Year
  Sex: Male

DRUGS (4)
  1. ALLOPURINOL (ALLOPURINOL) [Suspect]
     Active Substance: ALLOPURINOL
     Indication: GOUT
     Dosage: (DF ORAL)
     Route: 048
  2. PANAX GINSENG [Concomitant]
  3. METHYLPREDNISOLONE (METHYLPREDNISOLONE) [Suspect]
     Active Substance: METHYLPREDNISOLONE
     Indication: DRUG ERUPTION
     Route: 042
  4. ANTIHYPERTENSIVES [Concomitant]
     Active Substance: UNSPECIFIED INGREDIENT

REACTIONS (4)
  - Prothrombin time prolonged [None]
  - Purpura [None]
  - Drug eruption [None]
  - Blood fibrinogen decreased [None]
